FAERS Safety Report 7617892-5 (Version None)
Quarter: 2011Q3

REPORT INFORMATION
  Report Type: 
  Country: None (occurrence: None)
  Receive Date: 20110718
  Receipt Date: 20110705
  Transmission Date: 20111222
  Serious: Yes (Hospitalization, Other)
  Sender: FDA-Public Use
  Company Number: FI-ELI_LILLY_AND_COMPANY-FI201107001221

PATIENT
  Sex: Female

DRUGS (13)
  1. NEUROBION FORTE [Concomitant]
  2. OXYCODONE HCL [Concomitant]
  3. ASPIRIN AND DIPYRIDAMOLE [Concomitant]
  4. FORTEO [Suspect]
     Dosage: 20 UG, DAILY (1/D)
     Route: 065
     Dates: start: 20110410, end: 20110527
  5. ACETAMINOPHEN [Concomitant]
  6. PRIMASPAN [Concomitant]
  7. FORTEO [Suspect]
     Dosage: 20 UG, DAILY (1/D)
     Route: 065
     Dates: start: 20110702
  8. CALCICHEW D3 [Concomitant]
  9. DURAGESIC-100 [Concomitant]
  10. FORTEO [Suspect]
     Indication: OSTEOPOROSIS
     Dosage: 20 UG, DAILY (1/D)
     Route: 065
     Dates: start: 20110330, end: 20110404
  11. CORTISONE ACETATE [Concomitant]
     Dosage: 7.5 MG, UNK
  12. KETOMEX [Concomitant]
  13. ATACAND [Concomitant]

REACTIONS (4)
  - CEREBRAL INFARCTION [None]
  - DYSPNOEA [None]
  - POLLAKIURIA [None]
  - CARDIAC FAILURE [None]
